FAERS Safety Report 7463647-4 (Version None)
Quarter: 2011Q1

REPORT INFORMATION
  Report Type: 
  Country: None (occurrence: None)
  Receive Date: 20110302
  Receipt Date: 20101021
  Transmission Date: 20110831
  Serious: Yes (Disabling)
  Sender: FDA-Public Use
  Company Number: 163-21880-10040691

PATIENT
  Age: 62 Year
  Sex: Male

DRUGS (4)
  1. ZOMETA [Concomitant]
  2. VELCADE [Concomitant]
  3. DECADRON [Concomitant]
  4. REVLIMID [Suspect]
     Indication: MULTIPLE MYELOMA
     Dosage: 15 MG, DAILY FOR 14 DAYS EVERY 21 DAYS, PO
     Route: 047
     Dates: start: 20100322

REACTIONS (4)
  - PRURITUS [None]
  - JOINT SWELLING [None]
  - FATIGUE [None]
  - RASH [None]
